FAERS Safety Report 6422403-6 (Version None)
Quarter: 2009Q4

REPORT INFORMATION
  Report Type: 
  Country: None (occurrence: None)
  Receive Date: 20091030
  Receipt Date: 20090615
  Transmission Date: 20100525
  Serious: Yes (Death)
  Sender: FDA-Public Use
  Company Number: PHEH2009US13302

PATIENT
  Sex: Male

DRUGS (1)
  1. EXJADE [Suspect]
     Dosage: 1000 MG, QD
     Route: 048

REACTIONS (1)
  - AMYLOIDOSIS [None]
